FAERS Safety Report 4912997-1 (Version None)
Quarter: 2006Q1

REPORT INFORMATION
  Report Type: 
  Country: None (occurrence: None)
  Receive Date: 20060210
  Receipt Date: 20060127
  Transmission Date: 20060701
  Serious: Yes (Other)
  Sender: FDA-Public Use
  Company Number: US016784

PATIENT
  Age: 44 Year
  Sex: Male
  Weight: 99.7913 kg

DRUGS (6)
  1. ACTIQ [Suspect]
     Indication: BACK PAIN
     Dosage: 600 MG QID BUCCAL
     Route: 002
     Dates: start: 20030501, end: 20030901
  2. ACTIQ [Suspect]
     Indication: BACK PAIN
     Dosage: 1200 UG QID BUCCAL
     Route: 002
     Dates: start: 20030901, end: 20050901
  3. ROXICODONE [Concomitant]
  4. OXYCONTIN [Concomitant]
  5. LEXAPRO [Concomitant]
  6. DIOVAN [Concomitant]

REACTIONS (6)
  - CONVULSION [None]
  - DENTAL CARIES [None]
  - DRUG WITHDRAWAL SYNDROME [None]
  - GINGIVAL PAIN [None]
  - SUICIDE ATTEMPT [None]
  - TOOTH LOSS [None]
